FAERS Safety Report 5719079-X (Version None)
Quarter: 2008Q2

REPORT INFORMATION
  Report Type: 
  Country: None (occurrence: None)
  Receive Date: 20080423
  Receipt Date: 20071003
  Transmission Date: 20081010
  Serious: Yes (Other)
  Sender: FDA-Public Use
  Company Number: DAB-2007-00009

PATIENT
  Age: 52 Year
  Sex: Female

DRUGS (5)
  1. PACLITAXEL [Suspect]
     Indication: OVARIAN CANCER
     Dosage: INTRAVENOUS
     Route: 042
     Dates: start: 20070501
  2. CARBOPLATIN [Suspect]
     Indication: OVARIAN CANCER
     Dosage: INTRAVENOUS
     Route: 042
     Dates: start: 20070501
  3. CO-CODAMOL (PANADEINE CO) [Concomitant]
  4. DEXAMETHASONE TAB [Concomitant]
  5. ONDANSETRON HCL [Concomitant]

REACTIONS (1)
  - VISUAL DISTURBANCE [None]
